FAERS Safety Report 20804970 (Version 2)
Quarter: 2022Q2

REPORT INFORMATION
  Report Type: Spontaneous
  Country: US (occurrence: US)
  Receive Date: 20220509
  Receipt Date: 20220603
  Transmission Date: 20220720
  Serious: No
  Sender: FDA-Public Use
  Company Number: US-ORGANON-O2205USA000403

PATIENT
  Sex: Female

DRUGS (1)
  1. COZAAR [Suspect]
     Active Substance: LOSARTAN POTASSIUM
     Dosage: 1 TABLET DAILY
     Route: 048
     Dates: start: 20220429

REACTIONS (6)
  - Product dispensing error [Unknown]
  - Inappropriate schedule of product administration [Unknown]
  - Product odour abnormal [Unknown]
  - Product taste abnormal [Unknown]
  - Product container seal issue [Unknown]
  - No adverse event [Unknown]

NARRATIVE: CASE EVENT DATE: 20220429
